FAERS Safety Report 9166793 (Version 1)
Quarter: 2012Q4

REPORT INFORMATION
  Report Type: 
  Country: CH (occurrence: CH)
  Receive Date: 20121112
  Receipt Date: 20121112
  Transmission Date: 20130627
  Serious: Yes (Hospitalization, Other)
  Sender: FDA-Public Use
  Company Number: CH-RB-046535-12

PATIENT
  Age: 72 Year
  Sex: Female

DRUGS (6)
  1. TEMGESIC [Suspect]
     Indication: PRODUCT USED FOR UNKNOWN INDICATION
     Route: 060
     Dates: start: 20120831
  2. NEXAVAR [Suspect]
     Indication: CHEMOTHERAPY
     Dosage: 200mg per 2 days
     Route: 048
     Dates: start: 20120831, end: 20120911
  3. LOSARTAN [Suspect]
     Indication: PRODUCT USED FOR UNKNOWN INDICATION
     Route: 048
     Dates: start: 20120831, end: 20120902
  4. NORVASC [Suspect]
     Indication: PRODUCT USED FOR UNKNOWN INDICATION
     Route: 048
     Dates: start: 20120902
  5. PICOSULFATE [Suspect]
     Indication: PRODUCT USED FOR UNKNOWN INDICATION
     Route: 048
     Dates: start: 20120831
  6. MOVICOL [Suspect]
     Indication: PRODUCT USED FOR UNKNOWN INDICATION
     Route: 048
     Dates: start: 20120831

REACTIONS (3)
  - Oedematous pancreatitis [Recovering/Resolving]
  - Vomiting [Recovered/Resolved]
  - Abdominal pain [Recovered/Resolved]
